FAERS Safety Report 23161628 (Version 3)
Quarter: 2023Q4

REPORT INFORMATION
  Report Type: Spontaneous
  Country: JP (occurrence: JP)
  Receive Date: 20231108
  Receipt Date: 20231207
  Transmission Date: 20240110
  Serious: Yes (Hospitalization, Other)
  Sender: FDA-Public Use
  Company Number: JP-002147023-NVSJ2023JP016000

PATIENT
  Sex: Male

DRUGS (2)
  1. LUTATHERA [Suspect]
     Active Substance: LUTETIUM OXODOTREOTIDE LU-177
     Indication: Pancreatic neuroendocrine tumour
     Dosage: UNK
     Route: 042
     Dates: start: 20230921
  2. ARGININE\LYSINE [Suspect]
     Active Substance: ARGININE\LYSINE
     Indication: Product used for unknown indication
     Dosage: UNK
     Route: 042
     Dates: start: 20230921

REACTIONS (6)
  - Pancytopenia [Not Recovered/Not Resolved]
  - Plasma cell myeloma [Recovered/Resolved]
  - Disseminated intravascular coagulation [Recovered/Resolved]
  - Myelosuppression [Recovered/Resolved]
  - Pancreatic neuroendocrine tumour [Unknown]
  - Malignant neoplasm progression [Unknown]

NARRATIVE: CASE EVENT DATE: 20230101
